FAERS Safety Report 5669896-X (Version None)
Quarter: 2008Q1

REPORT INFORMATION
  Report Type: 
  Country: None (occurrence: None)
  Receive Date: 20080317
  Receipt Date: 20080304
  Transmission Date: 20080703
  Serious: Yes (Other)
  Sender: FDA-Public Use
  Company Number: FR-PFIZER INC-2008020210

PATIENT
  Age: 48 Year
  Sex: Female

DRUGS (1)
  1. LYRICA [Suspect]
     Indication: SCIATICA

REACTIONS (4)
  - FATIGUE [None]
  - HYPOAESTHESIA ORAL [None]
  - MICTURITION FREQUENCY DECREASED [None]
  - MUSCLE CONTRACTURE [None]
